FAERS Safety Report 6700151-2 (Version None)
Quarter: 2010Q2

REPORT INFORMATION
  Report Type: 
  Country: None (occurrence: None)
  Receive Date: 20100426
  Receipt Date: 20100415
  Transmission Date: 20101027
  Serious: Yes (Hospitalization)
  Sender: FDA-Public Use
  Company Number: 2010AL002329

PATIENT
  Age: 61 Year
  Sex: Female

DRUGS (7)
  1. VINORELBINE [Suspect]
     Indication: NON-SMALL CELL LUNG CANCER
  2. SIMVASTATIN [Concomitant]
  3. LISINOPRIL [Concomitant]
  4. AMLODIPINE [Concomitant]
  5. CHLORPHENAMINE [Concomitant]
  6. CIPROPLOXACIN [Concomitant]
  7. METOCLOPRAMIDE HYDROCHLORIDE [Concomitant]

REACTIONS (2)
  - CHEST PAIN [None]
  - PLEURITIC PAIN [None]
